FAERS Safety Report 15861393 (Version 1)
Quarter: 2019Q1

REPORT INFORMATION
  Report Type: Spontaneous
  Country: ES (occurrence: ES)
  Receive Date: 20190124
  Receipt Date: 20190124
  Transmission Date: 20190417
  Serious: Yes (Other)
  Sender: FDA-Public Use
  Company Number: ES-SUN PHARMACEUTICAL INDUSTRIES LTD-2019RR-197051

PATIENT
  Age: 35 Year
  Sex: Female

DRUGS (6)
  1. OMEPRAZOLE. [Suspect]
     Active Substance: OMEPRAZOLE
     Indication: ABDOMINAL PAIN UPPER
     Dosage: 20 MILLIGRAM, DAILY
     Route: 048
     Dates: start: 20181108
  2. ESOMEPRAZOL (1172A) [Concomitant]
     Active Substance: ESOMEPRAZOLE
     Indication: HELICOBACTER GASTRITIS
     Dosage: 80 MILLIGRAM, DAILY
     Route: 048
     Dates: start: 20181025, end: 20181108
  3. METRONIDAZOL (1966A) [Concomitant]
     Active Substance: METRONIDAZOLE
     Indication: HELICOBACTER GASTRITIS
     Dosage: 1000 MILLIGRAM, DAILY
     Route: 048
     Dates: start: 20181025, end: 20181108
  4. CLARITROMICINA (967A) [Concomitant]
     Active Substance: CLARITHROMYCIN
     Indication: HELICOBACTER GASTRITIS
     Dosage: 1000 MILLIGRAM, DAILY
     Route: 048
     Dates: start: 20181025, end: 20181108
  5. AMOXICILINA (108A) [Concomitant]
     Active Substance: AMOXICILLIN
     Indication: HELICOBACTER GASTRITIS
     Dosage: 2 GRAM, DAILY
     Route: 048
     Dates: start: 20181025, end: 20181108
  6. MONUROL [Suspect]
     Active Substance: FOSFOMYCIN TROMETHAMINE
     Indication: URINARY TRACT INFECTION
     Dosage: 3 GRAM, EVERY 72 HOURS
     Route: 048
     Dates: start: 20181115, end: 20181119

REACTIONS (2)
  - Paraesthesia [Recovered/Resolved]
  - Headache [Recovered/Resolved]

NARRATIVE: CASE EVENT DATE: 20181122
